FAERS Safety Report 26067990 (Version 1)
Quarter: 2025Q4

REPORT INFORMATION
  Report Type: Spontaneous
  Country: EU (occurrence: EU)
  Receive Date: 20251120
  Receipt Date: 20251120
  Transmission Date: 20260117
  Serious: Yes (Death)
  Sender: ACCORD
  Company Number: None

PATIENT
  Age: 53 Year
  Sex: Male
  Weight: 82 kg

DRUGS (10)
  1. CARBOPLATIN [Suspect]
     Active Substance: CARBOPLATIN
     Indication: Lung adenocarcinoma
     Dates: start: 20250512, end: 20250718
  2. PEMETREXED [Suspect]
     Active Substance: PEMETREXED
     Indication: Lung adenocarcinoma
     Dates: start: 20250512, end: 20250718
  3. AMIVANTAMAB [Suspect]
     Active Substance: AMIVANTAMAB
     Indication: Lung adenocarcinoma
     Dosage: STRENGTH: 350 MG,  J1
     Dates: start: 20250512, end: 20250512
  4. TRASTUZUMAB DERUXTECAN [Concomitant]
     Active Substance: TRASTUZUMAB DERUXTECAN
     Indication: Lung adenocarcinoma
     Dates: start: 20250828
  5. AMIVANTAMAB [Suspect]
     Active Substance: AMIVANTAMAB
     Indication: Lung adenocarcinoma
     Dosage: STRENGTH: 350 MG,  J2
     Dates: start: 20250513, end: 20250513
  6. AMIVANTAMAB [Suspect]
     Active Substance: AMIVANTAMAB
     Indication: Lung adenocarcinoma
     Dosage: STRENGTH: 350 MG, J8
     Dates: start: 20250519, end: 20250519
  7. AMIVANTAMAB [Suspect]
     Active Substance: AMIVANTAMAB
     Indication: Lung adenocarcinoma
     Dosage: STRENGTH: 350 MG, J15
     Dates: start: 20250526, end: 20250526
  8. AMIVANTAMAB [Suspect]
     Active Substance: AMIVANTAMAB
     Indication: Lung adenocarcinoma
     Dosage: STRENGTH: 350 MG, C2
     Dates: start: 20250603, end: 20250603
  9. AMIVANTAMAB [Suspect]
     Active Substance: AMIVANTAMAB
     Indication: Lung adenocarcinoma
     Dosage: STRENGTH: 350 MG, C3
     Dates: start: 20250624, end: 20250624
  10. AMIVANTAMAB [Suspect]
     Active Substance: AMIVANTAMAB
     Indication: Lung adenocarcinoma
     Dosage: STRENGTH: 350 MG, C4
     Dates: start: 20250718, end: 20250718

REACTIONS (1)
  - Interstitial lung disease [Fatal]

NARRATIVE: CASE EVENT DATE: 20250827
